FAERS Safety Report 6067380-5 (Version None)
Quarter: 2009Q1

REPORT INFORMATION
  Report Type: 
  Country: None (occurrence: None)
  Receive Date: 20090204
  Receipt Date: 20090204
  Transmission Date: 20090719
  Serious: Yes (Hospitalization)
  Sender: FDA-Public Use
  Company Number: None

PATIENT
  Age: 52 Year
  Sex: Male

DRUGS (1)
  1. BUPROPION HCL [Suspect]
     Indication: EX-TOBACCO USER
     Dosage: 100 MG TID PO
     Route: 048
     Dates: start: 20070828, end: 20090127

REACTIONS (2)
  - BLOOD ALCOHOL INCREASED [None]
  - CONVULSION [None]
